FAERS Safety Report 7761264-X (Version None)
Quarter: 2011Q3

REPORT INFORMATION
  Report Type: 
  Country: None (occurrence: None)
  Receive Date: 20110920
  Receipt Date: 20110913
  Transmission Date: 20111222
  Serious: Yes (Life-Threatening, Other)
  Sender: FDA-Public Use
  Company Number: US-CELGENEUS-163-21880-11091660

PATIENT
  Sex: Male

DRUGS (16)
  1. VALTREX [Concomitant]
     Dosage: 500 MILLIGRAM
     Route: 065
     Dates: start: 20110726
  2. CLONAZEPAM [Concomitant]
     Dosage: .5 MILLIGRAM
     Route: 065
     Dates: start: 20110726
  3. ATENOLOL [Concomitant]
     Dosage: 25 MILLIGRAM
     Route: 065
     Dates: start: 20110726
  4. POTASSIUM CHLORIDE [Concomitant]
     Dosage: 20 MILLIEQUIVALENTS
     Route: 065
     Dates: start: 20110726
  5. METFORMIN HCL [Concomitant]
     Dosage: 500 MILLIGRAM
     Route: 065
     Dates: start: 20110726
  6. MEPRON [Concomitant]
     Route: 065
     Dates: start: 20110726
  7. MULTI [Concomitant]
     Route: 065
     Dates: start: 20110726
  8. NEURONTIN [Concomitant]
     Dosage: 600 MILLIGRAM
     Route: 065
     Dates: start: 20110726
  9. REMERON [Concomitant]
     Dosage: 15 MILLIGRAM
     Route: 065
     Dates: start: 20110726
  10. VITAMIN D [Concomitant]
     Dosage: 50000 UNIT
     Route: 065
     Dates: start: 20110726
  11. REVLIMID [Suspect]
     Dosage: 5 MILLIGRAM
     Route: 048
     Dates: start: 20110401
  12. REVLIMID [Suspect]
     Dosage: 5 MILLIGRAM
     Route: 048
     Dates: start: 20110801
  13. REVLIMID [Suspect]
     Indication: MULTIPLE MYELOMA
     Dosage: 10 MILLIGRAM
     Route: 048
     Dates: start: 20101217
  14. CRESTOR [Concomitant]
     Dosage: 10 MILLIGRAM
     Route: 065
     Dates: start: 20110726
  15. LEXAPRO [Concomitant]
     Dosage: 10 MILLIGRAM
     Route: 065
     Dates: start: 20110726
  16. BYETTA [Concomitant]
     Dosage: 10 MICROGRAM
     Route: 065
     Dates: start: 20110726

REACTIONS (2)
  - BLOOD GLUCOSE DECREASED [None]
  - FATIGUE [None]
